FAERS Safety Report 25887341 (Version 1)
Quarter: 2025Q4

REPORT INFORMATION
  Report Type: Report from Study
  Country: US (occurrence: US)
  Receive Date: 20251006
  Receipt Date: 20251006
  Transmission Date: 20260118
  Serious: Yes (Hospitalization)
  Sender: BAUSCH AND LOMB
  Company Number: US-BAUSCHBL-2025BNL029316

PATIENT
  Age: 83 Year
  Sex: Female

DRUGS (1)
  1. MIEBO [Suspect]
     Active Substance: PERFLUOROHEXYLOCTANE
     Indication: Product used for unknown indication
     Dosage: INSTILL 1 DROP INTO BOTH EYES FOUR TIMES A DAY (MUST SEE PACKAGE INSERT FOR ADMIN INSTRUCTIONS)
     Route: 047

REACTIONS (1)
  - Hospitalisation [Unknown]
